FAERS Safety Report 4803234-7 (Version None)
Quarter: 2005Q4

REPORT INFORMATION
  Report Type: 
  Country: None (occurrence: None)
  Receive Date: 20051013
  Receipt Date: 20050923
  Transmission Date: 20060501
  Serious: Yes (Other)
  Sender: FDA-Public Use
  Company Number: TRP_0459_2005

PATIENT
  Age: 42 Year
  Sex: Male

DRUGS (7)
  1. RIBASPHERE [Suspect]
     Indication: HEPATITIS C
     Dosage: DF PO
     Route: 048
     Dates: start: 20050902
  2. PEG-INTRON [Suspect]
     Indication: HEPATITIS C
     Dosage: DF SC
     Route: 058
     Dates: start: 20050902
  3. DOXYCYCLINE HYCLATE [Concomitant]
  4. IBUPROFEN [Concomitant]
  5. LASIX [Concomitant]
  6. POTASSIUM [Concomitant]
  7. SPIRONOLACTONE [Concomitant]

REACTIONS (3)
  - CHEST PAIN [None]
  - DYSPNOEA [None]
  - PULMONARY OEDEMA [None]
